FAERS Safety Report 11006863 (Version 2)
Quarter: 2015Q2

REPORT INFORMATION
  Report Type: Spontaneous
  Country: US (occurrence: US)
  Receive Date: 20150409
  Receipt Date: 20150514
  Transmission Date: 20150821
  Serious: Yes (Other)
  Sender: FDA-Public Use
  Company Number: US-009507513-1503USA013603

PATIENT
  Age: 26 Year
  Sex: Female
  Weight: 81.63 kg

DRUGS (1)
  1. NEXPLANON [Suspect]
     Active Substance: ETONOGESTREL
     Indication: CONTRACEPTION
     Dosage: 1 ROD INSERTED
     Route: 059
     Dates: start: 20150220, end: 20150326

REACTIONS (4)
  - Dyspnoea [Unknown]
  - Chest pain [Unknown]
  - Medical device removal [Unknown]
  - Palpitations [Unknown]

NARRATIVE: CASE EVENT DATE: 20150227
